FAERS Safety Report 5892733-5 (Version None)
Quarter: 2008Q3

REPORT INFORMATION
  Report Type: 
  Country: None (occurrence: None)
  Receive Date: 20080923
  Receipt Date: 20080915
  Transmission Date: 20090109
  Serious: Yes (Hospitalization)
  Sender: FDA-Public Use
  Company Number: FR-NOVOPROD-277856

PATIENT
  Age: 59 Year
  Sex: Male

DRUGS (1)
  1. NOVONORM [Suspect]
     Indication: TYPE 2 DIABETES MELLITUS
     Dosage: .5 MG, QD
     Dates: end: 20080421

REACTIONS (1)
  - DRUG ERUPTION [None]
